FAERS Safety Report 9403656 (Version 1)
Quarter: 2013Q3

REPORT INFORMATION
  Report Type: Report from Study
  Country: DE (occurrence: DE)
  Receive Date: 20130717
  Receipt Date: 20130717
  Transmission Date: 20140515
  Serious: Yes (Death)
  Sender: FDA-Public Use
  Company Number: DE-ROCHE-1249426

PATIENT
  Sex: Male

DRUGS (1)
  1. RITUXIMAB [Suspect]
     Indication: RHEUMATOID ARTHRITIS
     Dosage: LAST RITUXIMAB ADMINISTRATION PRIOR TO SAE: 20-SEP-2009, 25-MAR-2009 AND 07-DEC-2010.
     Route: 065

REACTIONS (1)
  - Multi-organ failure [Fatal]
